FAERS Safety Report 16111172 (Version 2)
Quarter: 2019Q1

REPORT INFORMATION
  Report Type: Report from Study
  Country: CO (occurrence: CO)
  Receive Date: 20190325
  Receipt Date: 20190328
  Transmission Date: 20190418
  Serious: Yes (Hospitalization)
  Sender: FDA-Public Use
  Company Number: PHHY2019CO063258

PATIENT
  Age: 55 Year
  Sex: Male

DRUGS (2)
  1. ENTRESTO [Suspect]
     Active Substance: SACUBITRIL\VALSARTAN
     Dosage: 50 MG, Q12H
     Route: 048
     Dates: start: 20190315
  2. ENTRESTO [Suspect]
     Active Substance: SACUBITRIL\VALSARTAN
     Indication: CARDIAC FAILURE
     Dosage: 1 DF (100 MG), Q12H
     Route: 048
     Dates: start: 20190209

REACTIONS (5)
  - Diabetes mellitus [Unknown]
  - Ulcer [Unknown]
  - Oedema [Unknown]
  - Oedema peripheral [Unknown]
  - Agitation [Unknown]

NARRATIVE: CASE EVENT DATE: 20190315
